FAERS Safety Report 19495411 (Version 3)
Quarter: 2022Q1

REPORT INFORMATION
  Report Type: Other
  Country: CN (occurrence: None)
  Receive Date: 20210706
  Receipt Date: 20220211
  Transmission Date: 20220423
  Serious: Yes (Other)
  Sender: FDA-Public Use
  Company Number: US-ROCHE-2763263

PATIENT

DRUGS (3)
  1. CAPECITABINE [Suspect]
     Active Substance: CAPECITABINE
     Indication: Colorectal cancer metastatic
     Dosage: EVERY 3 WEEKS DAY 1-14
     Route: 048
  2. OXALIPLATIN [Suspect]
     Active Substance: OXALIPLATIN
     Indication: Colorectal cancer metastatic
     Dosage: ON DAY 1
     Route: 042
  3. CATEQUENTINIB [Suspect]
     Active Substance: CATEQUENTINIB
     Indication: Colorectal cancer metastatic
     Route: 048

REACTIONS (9)
  - Hypertriglyceridaemia [Unknown]
  - Hypertension [Unknown]
  - Neutropenia [Unknown]
  - Lipase increased [Unknown]
  - Leukopenia [Unknown]
  - Fatigue [Unknown]
  - Nausea [Unknown]
  - Vomiting [Unknown]
  - Pancytopenia [Unknown]
